FAERS Safety Report 4911666-1 (Version None)
Quarter: 2006Q1

REPORT INFORMATION
  Report Type: 
  Country: None (occurrence: None)
  Receive Date: 20060213
  Receipt Date: 20060131
  Transmission Date: 20060701
  Serious: Yes (Hospitalization)
  Sender: FDA-Public Use
  Company Number: 2006014509

PATIENT
  Age: 75 Year
  Sex: Male

DRUGS (10)
  1. SUTENT [Suspect]
     Indication: RENAL CELL CARCINOMA STAGE UNSPECIFIED
     Dosage: 50 MG (50 MG, 1 IN 1 D), ORAL
     Route: 048
     Dates: start: 20051230, end: 20060126
  2. FLONASE [Concomitant]
  3. TIMOPTIC (TIMILOL MALEATE) [Concomitant]
  4. U ROCIT-K (POTASSIUM CITRATE) [Concomitant]
  5. TAMSULOSIN HCL [Concomitant]
  6. DULCOLAX [Concomitant]
  7. PSYLLIUM (PSYLLIUM) [Concomitant]
  8. FOLTX (CYANOCOBALAMIN, FOLIC ACID, PYRIDOXINE) [Concomitant]
  9. LOTRINOSE (BETAMETHASONE DIPROPIONATE, CLOTRIMAZOLE) [Concomitant]
  10. TOPROL-XL [Concomitant]

REACTIONS (6)
  - CONDITION AGGRAVATED [None]
  - FLANK PAIN [None]
  - GRAND MAL CONVULSION [None]
  - LOSS OF CONSCIOUSNESS [None]
  - MENTAL STATUS CHANGES [None]
  - SOMNOLENCE [None]
